FAERS Safety Report 13256221 (Version 1)
Quarter: 2017Q1

REPORT INFORMATION
  Report Type: Spontaneous
  Country: US (occurrence: US)
  Receive Date: 20170220
  Receipt Date: 20170220
  Transmission Date: 20170428
  Serious: Yes (Other)
  Sender: FDA-Public Use
  Company Number: None

PATIENT
  Age: 38 Year
  Sex: Female
  Weight: 63 kg

DRUGS (1)
  1. CIPRO [Suspect]
     Active Substance: CIPROFLOXACIN HYDROCHLORIDE
     Indication: URINARY TRACT INFECTION
     Dosage: ?          QUANTITY:5 TABLET(S);?EVERY 12 HOURS ORAL
     Route: 048

REACTIONS (7)
  - Anxiety [None]
  - Nausea [None]
  - Depersonalisation/derealisation disorder [None]
  - Feeling abnormal [None]
  - Cognitive disorder [None]
  - Insomnia [None]
  - Weight decreased [None]
